FAERS Safety Report 22179967 (Version 1)
Quarter: 2023Q2

REPORT INFORMATION
  Report Type: Spontaneous
  Country: US (occurrence: US)
  Receive Date: 20230406
  Receipt Date: 20230406
  Transmission Date: 20230721
  Serious: Yes (Hospitalization, Other)
  Sender: FDA-Public Use
  Company Number: US-JNJFOC-20230370795

PATIENT
  Age: 27 Year
  Sex: Male

DRUGS (3)
  1. INVEGA SUSTENNA [Suspect]
     Active Substance: PALIPERIDONE PALMITATE
     Indication: Schizophrenia
     Dosage: FIRST DOSE
     Route: 030
     Dates: start: 202302
  2. INVEGA SUSTENNA [Suspect]
     Active Substance: PALIPERIDONE PALMITATE
     Dosage: SECOND DOSE
     Route: 030
  3. INVEGA SUSTENNA [Suspect]
     Active Substance: PALIPERIDONE PALMITATE

REACTIONS (13)
  - Suicidal ideation [Unknown]
  - Depression [Unknown]
  - Mental impairment [Unknown]
  - Dizziness [Unknown]
  - Vision blurred [Unknown]
  - Dyskinesia [Unknown]
  - Dehydration [Unknown]
  - Somnolence [Unknown]
  - Restlessness [Unknown]
  - Gait disturbance [Unknown]
  - Muscle tightness [Unknown]
  - Abnormal behaviour [Unknown]
  - Off label use [Unknown]

NARRATIVE: CASE EVENT DATE: 20230201
